FAERS Safety Report 21017628 (Version 1)
Quarter: 2022Q2

REPORT INFORMATION
  Report Type: Spontaneous
  Country: MX (occurrence: None)
  Receive Date: 20220628
  Receipt Date: 20220628
  Transmission Date: 20220721
  Serious: Yes (Other)
  Sender: FDA-Public Use
  Company Number: 2022A230751

PATIENT
  Age: 27055 Day
  Sex: Female
  Weight: 65 kg

DRUGS (3)
  1. BENRALIZUMAB [Suspect]
     Active Substance: BENRALIZUMAB
     Indication: Asthma
     Route: 058
     Dates: start: 20220519, end: 20220519
  2. SYMBICORT [Suspect]
     Active Substance: BUDESONIDE\FORMOTEROL FUMARATE DIHYDRATE
     Indication: Asthma
     Dosage: 320/9 EVERY 8 HOURS
     Route: 055
  3. SPIRIVA RESPIMAT [Concomitant]
     Active Substance: TIOTROPIUM BROMIDE
     Dosage: 2 EVERY 24 HOURS

REACTIONS (6)
  - Rash [Recovered/Resolved]
  - Hyperhidrosis [Recovered/Resolved]
  - Urticaria [Recovered/Resolved]
  - Xerosis [Recovered/Resolved]
  - Insomnia [Unknown]
  - Decreased activity [Unknown]

NARRATIVE: CASE EVENT DATE: 20220519
